FAERS Safety Report 25731948 (Version 1)
Quarter: 2025Q3

REPORT INFORMATION
  Report Type: Spontaneous
  Country: US (occurrence: None)
  Receive Date: 20250827
  Receipt Date: 20250827
  Transmission Date: 20251020
  Serious: Yes (Other)
  Sender: FDA-CTU
  Company Number: None

PATIENT
  Age: 71 Year
  Sex: Female
  Weight: 72 kg

DRUGS (1)
  1. SYNTHROID [Suspect]
     Active Substance: LEVOTHYROXINE SODIUM
     Indication: Thyroid hormone replacement therapy
     Route: 048
     Dates: end: 20250723

REACTIONS (9)
  - Alopecia [None]
  - Lethargy [None]
  - Depressed mood [None]
  - Weight increased [None]
  - Pruritus [None]
  - Dry skin [None]
  - General physical health deterioration [None]
  - Quality of life decreased [None]
  - Product use issue [None]

NARRATIVE: CASE EVENT DATE: 20250522
